FAERS Safety Report 9202346 (Version 3)
Quarter: 2013Q2

REPORT INFORMATION
  Report Type: Spontaneous
  Country: CA (occurrence: CA)
  Receive Date: 20130401
  Receipt Date: 20130610
  Transmission Date: 20140414
  Serious: Yes (Other)
  Sender: FDA-Public Use
  Company Number: CA-ELI_LILLY_AND_COMPANY-CA201303007889

PATIENT
  Age: 61 Year
  Sex: Male
  Weight: 83.9 kg

DRUGS (6)
  1. FORTEO [Suspect]
     Indication: OSTEOPOROSIS
     Dosage: 20 UG, QD
     Route: 058
     Dates: start: 20130228, end: 20130327
  2. VITAMIN D NOS [Concomitant]
     Dosage: UNK
  3. CALCIUM [Concomitant]
     Dosage: UNK
  4. OMEGA 3 [Concomitant]
     Dosage: UNK
  5. GLUCOSAMINE [Concomitant]
     Dosage: UNK
  6. MELOXICAM [Concomitant]
     Dosage: UNK

REACTIONS (4)
  - Enchondroma [Not Recovered/Not Resolved]
  - Osteosclerosis [Unknown]
  - Osteoarthritis [Not Recovered/Not Resolved]
  - Loose body in joint [Not Recovered/Not Resolved]
